FAERS Safety Report 4848759-3 (Version None)
Quarter: 2005Q4

REPORT INFORMATION
  Report Type: 
  Country: None (occurrence: None)
  Receive Date: 20051206
  Receipt Date: 20051122
  Transmission Date: 20060501
  Serious: Yes (Life-Threatening)
  Sender: FDA-Public Use
  Company Number: JP200511002662

PATIENT
  Age: 58 Year
  Sex: Male

DRUGS (5)
  1. GEMZAR [Suspect]
     Indication: GASTRIC CANCER
     Dosage: 1400 MG, OTHER, INTRAVENOUS
     Route: 042
     Dates: start: 20040801, end: 20041201
  2. GEMZAR [Suspect]
     Indication: GASTRIC CANCER
     Dosage: 1400 MG, OTHER, INTRAVENOUS
     Route: 042
     Dates: start: 20050101, end: 20050201
  3. GEMZAR [Suspect]
     Indication: GASTRIC CANCER
     Dosage: 1400 MG, OTHER, INTRAVENOUS
     Route: 042
     Dates: start: 20051102
  4. OXALIPLATIN (OXALIPLATIN) [Concomitant]
  5. TAXOTERE [Concomitant]

REACTIONS (2)
  - LYMPHANGIOSIS CARCINOMATOSA [None]
  - PNEUMONITIS [None]
